FAERS Safety Report 14022757 (Version 1)
Quarter: 2017Q3

REPORT INFORMATION
  Report Type: Spontaneous
  Country: US (occurrence: US)
  Receive Date: 20170928
  Receipt Date: 20170928
  Transmission Date: 20171128
  Serious: No
  Sender: FDA-Public Use
  Company Number: US-SA-2016SA184532

PATIENT
  Age: 44 Year
  Sex: Female

DRUGS (5)
  1. AUBAGIO [Suspect]
     Active Substance: TERIFLUNOMIDE
     Indication: MULTIPLE SCLEROSIS
     Route: 048
     Dates: start: 20160811
  2. LAMICTAL [Concomitant]
     Active Substance: LAMOTRIGINE
  3. NUVIGIL [Concomitant]
     Active Substance: ARMODAFINIL
  4. DIAZEPAM. [Concomitant]
     Active Substance: DIAZEPAM
  5. LEVOTHYROXINE. [Concomitant]
     Active Substance: LEVOTHYROXINE

REACTIONS (3)
  - Rash [Unknown]
  - Nausea [Unknown]
  - Tinnitus [Unknown]

NARRATIVE: CASE EVENT DATE: 2016
